FAERS Safety Report 13601782 (Version 1)
Quarter: 2017Q2

REPORT INFORMATION
  Report Type: Spontaneous
  Country: US (occurrence: US)
  Receive Date: 20170601
  Receipt Date: 20170601
  Transmission Date: 20170830
  Serious: No
  Sender: FDA-Public Use
  Company Number: US-BAUSCH-BL-2016-010683

PATIENT
  Age: 65 Year
  Sex: Male
  Weight: 69.46 kg

DRUGS (8)
  1. SYNTHROID [Concomitant]
     Active Substance: LEVOTHYROXINE SODIUM
     Indication: THYROID THERAPY
     Route: 048
  2. LIPITOR [Concomitant]
     Active Substance: ATORVASTATIN CALCIUM
     Indication: CARDIAC DISORDER
     Route: 048
     Dates: start: 1997
  3. FISH OIL [Concomitant]
     Active Substance: FISH OIL
     Indication: SUPPLEMENTATION THERAPY
     Dosage: EVERY 4-6 HOURS AS NEEDED
     Route: 048
  4. PSEUDOEPHEDRINE HYDROCHLORIDE. [Concomitant]
     Active Substance: PSEUDOEPHEDRINE HYDROCHLORIDE
     Indication: NASAL DECONGESTION THERAPY
     Dosage: EVERY 4-6 HOURS AS NEEDED
     Route: 048
  5. ELIDEL [Suspect]
     Active Substance: PIMECROLIMUS
     Indication: VITILIGO
     Route: 061
     Dates: start: 201604
  6. ASPIRIN. [Concomitant]
     Active Substance: ASPIRIN
     Indication: CARDIAC DISORDER
     Route: 048
     Dates: start: 1997
  7. VITAMIN D3 [Concomitant]
     Active Substance: CHOLECALCIFEROL
     Indication: VITAMIN SUPPLEMENTATION
     Route: 048
     Dates: start: 2016
  8. LORATADINE. [Concomitant]
     Active Substance: LORATADINE
     Indication: HYPERSENSITIVITY
     Route: 048

REACTIONS (2)
  - Off label use [Not Recovered/Not Resolved]
  - No adverse event [Unknown]
